FAERS Safety Report 9758994 (Version 6)
Quarter: 2018Q4

REPORT INFORMATION
  Report Type: Report from Study
  Country: US (occurrence: US)
  Receive Date: 20131216
  Receipt Date: 20181114
  Transmission Date: 20190205
  Serious: Yes (Hospitalization, Other)
  Sender: FDA-Public Use
  Company Number: US-ASTELLAS-2013US012979

PATIENT
  Age: 69 Year
  Sex: Female

DRUGS (4)
  1. LOVENOX [Concomitant]
     Active Substance: ENOXAPARIN SODIUM
     Indication: ANTICOAGULANT THERAPY
     Route: 065
  2. ASPIRIN. [Concomitant]
     Active Substance: ASPIRIN
     Indication: CARDIAC DISORDER
     Dosage: 81 MG, AT BEDTIME (AT NIGHT)
     Route: 065
  3. TACROLIMUS. [Suspect]
     Active Substance: TACROLIMUS
     Indication: PANCREAS TRANSPLANT REJECTION
  4. TACROLIMUS. [Suspect]
     Active Substance: TACROLIMUS
     Indication: KIDNEY TRANSPLANT REJECTION
     Dosage: 3 MG (2 MG IN THE AM AND 1 MG IN THE PM)
     Route: 048
     Dates: start: 20030907

REACTIONS (8)
  - Abdominal pain [Recovering/Resolving]
  - Product use in unapproved indication [Unknown]
  - Abdominal adhesions [Unknown]
  - Facial pain [Recovered/Resolved]
  - Fall [Recovered/Resolved]
  - Blood pressure increased [Unknown]
  - Ligament sprain [Unknown]
  - Tooth fracture [Recovered/Resolved]

NARRATIVE: CASE EVENT DATE: 20130213
